FAERS Safety Report 5411215-8 (Version None)
Quarter: 2007Q3

REPORT INFORMATION
  Report Type: 
  Country: None (occurrence: None)
  Receive Date: 20070810
  Receipt Date: 20070807
  Transmission Date: 20080115
  Serious: Yes (Death)
  Sender: FDA-Public Use
  Company Number: B0479728A

PATIENT
  Age: 49 Year
  Sex: Male

DRUGS (1)
  1. PAXIL [Suspect]
     Indication: DEPRESSION
     Route: 048
     Dates: end: 20070601

REACTIONS (1)
  - COMPLETED SUICIDE [None]
